FAERS Safety Report 6463824-5 (Version None)
Quarter: 2009Q4

REPORT INFORMATION
  Report Type: 
  Country: None (occurrence: None)
  Receive Date: 20091201
  Receipt Date: 20091124
  Transmission Date: 20100525
  Serious: Yes (Life-Threatening, Hospitalization)
  Sender: FDA-Public Use
  Company Number: JP-JNJFOC-20080502833

PATIENT
  Sex: Female

DRUGS (1)
  1. CRAVIT [Suspect]
     Indication: URINARY TRACT INFECTION
     Route: 048

REACTIONS (5)
  - CEREBRAL HAEMORRHAGE [None]
  - COLITIS ULCERATIVE [None]
  - HEPATIC ATROPHY [None]
  - HEPATIC ENCEPHALOPATHY [None]
  - HEPATITIS FULMINANT [None]
